FAERS Safety Report 20822466 (Version 2)
Quarter: 2022Q2

REPORT INFORMATION
  Report Type: Spontaneous
  Country: US (occurrence: US)
  Receive Date: 20220512
  Receipt Date: 20220526
  Transmission Date: 20220721
  Serious: Yes (Other)
  Sender: FDA-Public Use
  Company Number: US-TEVA-2022-US-2035060

PATIENT
  Age: 5 Decade
  Sex: Female

DRUGS (3)
  1. PREDNISONE [Suspect]
     Active Substance: PREDNISONE
     Indication: Sarcoidosis
     Route: 065
  2. LEFLUNOMIDE [Suspect]
     Active Substance: LEFLUNOMIDE
     Indication: Sarcoidosis
     Dosage: 10 MILLIGRAM DAILY;
     Route: 065
  3. LEFLUNOMIDE [Suspect]
     Active Substance: LEFLUNOMIDE
     Indication: Sarcoidosis
     Dosage: 20 MILLIGRAM DAILY;
     Route: 065

REACTIONS (2)
  - Cataract [Unknown]
  - Eosinophilic bronchitis [Recovered/Resolved]
